FAERS Safety Report 9266231 (Version 2)
Quarter: 2014Q1

REPORT INFORMATION
  Report Type: Spontaneous
  Country: BR (occurrence: BR)
  Receive Date: 20130502
  Receipt Date: 20140303
  Transmission Date: 20141002
  Serious: Yes (Other)
  Sender: FDA-Public Use
  Company Number: BR-ROCHE-1220173

PATIENT
  Sex: Female
  Weight: 46 kg

DRUGS (3)
  1. ROACUTAN [Suspect]
     Indication: ACNE
     Route: 065
     Dates: start: 201303
  2. ROACUTAN [Suspect]
     Route: 065
  3. DIPYRONE [Concomitant]

REACTIONS (3)
  - Exposure during pregnancy [Unknown]
  - Hypersensitivity [Unknown]
  - Medication error [Unknown]
